FAERS Safety Report 9703760 (Version 1)
Quarter: 2013Q4

REPORT INFORMATION
  Report Type: Spontaneous
  Country: US (occurrence: US)
  Receive Date: 20131122
  Receipt Date: 20131122
  Transmission Date: 20140711
  Serious: Yes (Other)
  Sender: FDA-Public Use
  Company Number: US-BAYER-2013-138962

PATIENT
  Sex: Female
  Weight: 72.56 kg

DRUGS (1)
  1. ALKA-SELTZER ORIGINAL [Suspect]
     Indication: HEADACHE
     Dosage: 2 DF, PRN
     Route: 048

REACTIONS (5)
  - Eye disorder [Recovered/Resolved]
  - Off label use [None]
  - Drug hypersensitivity [Recovered/Resolved]
  - Oedema mouth [Recovered/Resolved]
  - Dyspnoea [Recovered/Resolved]
